FAERS Safety Report 7878574-8 (Version None)
Quarter: 2011Q4

REPORT INFORMATION
  Report Type: 
  Country: None (occurrence: None)
  Receive Date: 20111028
  Receipt Date: 20111021
  Transmission Date: 20120403
  Serious: Yes (Other)
  Sender: FDA-Public Use
  Company Number: LEO-2011-00874

PATIENT
  Age: 54 Year
  Sex: Male

DRUGS (2)
  1. INNOHEP [Suspect]
     Indication: OSTEOSYNTHESIS
     Dosage: 4500 IU (4500 IU, 1 IN 1 D), SUBCUTANEOUS
     Route: 058
  2. VOLTAREN [Concomitant]

REACTIONS (1)
  - DEEP VEIN THROMBOSIS [None]
